FAERS Safety Report 22754033 (Version 3)
Quarter: 2023Q4

REPORT INFORMATION
  Report Type: Spontaneous
  Country: US (occurrence: US)
  Receive Date: 20230727
  Receipt Date: 20231027
  Transmission Date: 20240109
  Serious: No
  Sender: FDA-Public Use
  Company Number: US-BRISTOL-MYERS SQUIBB COMPANY-2023-105518

PATIENT
  Sex: Female

DRUGS (1)
  1. ORENCIA [Suspect]
     Active Substance: ABATACEPT
     Indication: Rheumatoid arthritis

REACTIONS (7)
  - Insomnia [Unknown]
  - Hyperhidrosis [Unknown]
  - Fatigue [Unknown]
  - Vomiting [Unknown]
  - Eating disorder [Unknown]
  - Dizziness [Unknown]
  - Dyspnoea [Unknown]
